FAERS Safety Report 5590990-6 (Version None)
Quarter: 2008Q1

REPORT INFORMATION
  Report Type: 
  Country: None (occurrence: None)
  Receive Date: 20080115
  Receipt Date: 20080103
  Transmission Date: 20080703
  Serious: Yes (Death, Other)
  Sender: FDA-Public Use
  Company Number: US-BAYER-US-2007-006375

PATIENT
  Age: 44 Year
  Sex: Female
  Weight: 90 kg

DRUGS (43)
  1. MAGNEVIST [Suspect]
     Indication: NUCLEAR MAGNETIC RESONANCE IMAGING
     Route: 042
     Dates: start: 19990304, end: 19990304
  2. MAGNEVIST [Suspect]
     Route: 042
     Dates: start: 20000125, end: 20000125
  3. MAGNEVIST [Suspect]
     Route: 042
     Dates: start: 19990504, end: 19990504
  4. MAGNEVIST [Suspect]
     Route: 042
     Dates: start: 19990217, end: 19990217
  5. MAGNEVIST [Suspect]
     Route: 042
     Dates: start: 19990319, end: 19990319
  6. MAGNEVIST [Suspect]
     Route: 042
     Dates: start: 20040618, end: 20040618
  7. MAGNEVIST [Suspect]
     Route: 042
     Dates: start: 19990328, end: 19990328
  8. MAGNEVIST [Suspect]
     Route: 042
     Dates: start: 19990210, end: 19990210
  9. COUMADIN [Concomitant]
  10. ATROVENT [Concomitant]
  11. PREDNISONE TAB [Concomitant]
  12. TORSEMIDE [Concomitant]
  13. NEURONTIN [Concomitant]
  14. SINGULAIR [Concomitant]
  15. ADVAIR DISKUS 100/50 [Concomitant]
  16. ZANTAC [Concomitant]
  17. ZOLOFT [Concomitant]
  18. RENAGEL [Concomitant]
     Dosage: UNIT DOSE: 800 MG
  19. K-DUR 10 [Concomitant]
  20. EPOGEN [Concomitant]
     Route: 058
  21. BACTRIM DS [Concomitant]
  22. EPOGEN [Concomitant]
  23. SENNA [Concomitant]
  24. NEPHROCAPS [Concomitant]
  25. DILAUDID [Concomitant]
  26. ALBUTEROL [Concomitant]
  27. ATIVAN [Concomitant]
  28. MAALOX /USA/ [Concomitant]
  29. DULCOLAX [Concomitant]
  30. ONDANSETRON HYDROCHLORIDE [Concomitant]
  31. COMPAZINE [Concomitant]
  32. AMIODARONE HCL [Concomitant]
  33. SEROQUEL [Concomitant]
  34. VASOPRESSIN AND ANALOGUES [Concomitant]
  35. HYDROCORTISONE [Concomitant]
  36. MIDODRINE [Concomitant]
  37. NEXIUM [Concomitant]
  38. NOREPINEPHRINE [Concomitant]
  39. ARANESP [Concomitant]
     Dosage: UNIT DOSE: 40 ?G
     Route: 058
  40. INSULIN [Concomitant]
  41. FISH OIL [Concomitant]
  42. LIDODERM [Concomitant]
  43. MIRENA [Concomitant]

REACTIONS (19)
  - ANTIPHOSPHOLIPID SYNDROME [None]
  - CARDIAC FAILURE CONGESTIVE [None]
  - CATHETER RELATED INFECTION [None]
  - CATHETER SEPSIS [None]
  - DRUG DEPENDENCE [None]
  - GRAFT THROMBOSIS [None]
  - HYPOTENSION [None]
  - LARGE INTESTINE PERFORATION [None]
  - METABOLIC ALKALOSIS [None]
  - NEPHROGENIC SYSTEMIC FIBROSIS [None]
  - NO THERAPEUTIC RESPONSE [None]
  - PERITONEAL DIALYSIS [None]
  - PERITONITIS BACTERIAL [None]
  - RENAL FAILURE CHRONIC [None]
  - SEPTIC SHOCK [None]
  - STAPHYLOCOCCAL INFECTION [None]
  - TREATMENT FAILURE [None]
  - ULCER [None]
  - URINARY TRACT INFECTION [None]
